FAERS Safety Report 5957006-0 (Version None)
Quarter: 2008Q4

REPORT INFORMATION
  Report Type: 
  Country: None (occurrence: None)
  Receive Date: 20081118
  Receipt Date: 20081110
  Transmission Date: 20090506
  Serious: No
  Sender: FDA-Public Use
  Company Number: A0743947A

PATIENT
  Age: 73 Year
  Sex: Male

DRUGS (4)
  1. COREG CR [Suspect]
     Indication: ATRIAL FIBRILLATION
     Dosage: 80MG PER DAY
     Route: 048
     Dates: start: 20080811, end: 20081106
  2. FUROSEMIDE [Concomitant]
  3. UNKNOWN MEDICATION [Concomitant]
  4. COUMADIN [Concomitant]

REACTIONS (9)
  - ABDOMINAL DISCOMFORT [None]
  - ANOREXIA [None]
  - DIARRHOEA [None]
  - DIZZINESS [None]
  - DYSPNOEA [None]
  - FATIGUE [None]
  - HEART RATE INCREASED [None]
  - MENTAL IMPAIRMENT [None]
  - MUSCULAR WEAKNESS [None]
